FAERS Safety Report 19621497 (Version 1)
Quarter: 2021Q3

REPORT INFORMATION
  Report Type: Spontaneous
  Country: US (occurrence: US)
  Receive Date: 20210728
  Receipt Date: 20210728
  Transmission Date: 20211014
  Serious: Yes (Hospitalization)
  Sender: FDA-Public Use
  Company Number: US-LUPIN PHARMACEUTICALS INC.-2021-13020

PATIENT
  Age: 79 Year
  Sex: Male

DRUGS (6)
  1. TAGRAXOFUSP. [Concomitant]
     Active Substance: TAGRAXOFUSP
     Indication: BLASTIC PLASMACYTOID DENDRITIC CELL NEOPLASIA
     Dosage: FIRST?LINE TREATMENT WHICH WAS SCHEDULED ON DAYS 1?5 OF A 21 DAY CYCLE (FIRST CYCLE)
     Route: 042
  2. VENETOCLAX. [Suspect]
     Active Substance: VENETOCLAX
     Indication: BLASTIC PLASMACYTOID DENDRITIC CELL NEOPLASIA
     Dosage: 400 MILLIGRAM, QD
     Route: 048
  3. TAGRAXOFUSP. [Concomitant]
     Active Substance: TAGRAXOFUSP
     Dosage: FIRST?LINE TREATMENT (CYCLE 2?7)
     Route: 042
  4. METHYLPREDNISOLONE. [Suspect]
     Active Substance: METHYLPREDNISOLONE
     Indication: PREMEDICATION
     Dosage: UNK
     Route: 065
  5. AZACITIDINE. [Suspect]
     Active Substance: AZACITIDINE
     Indication: BLASTIC PLASMACYTOID DENDRITIC CELL NEOPLASIA
     Dosage: ON DAYS 1?5 OF A 28 DAY CYCLE (SECOND?LINE TREATMENT)
     Route: 042
  6. TAGRAXOFUSP. [Concomitant]
     Active Substance: TAGRAXOFUSP
     Dosage: FIRST?LINE TREATMENT (CYCLE 8)
     Route: 042

REACTIONS (2)
  - Hyperglycaemia [Unknown]
  - Off label use [Unknown]
